FAERS Safety Report 10556104 (Version 2)
Quarter: 2014Q4

REPORT INFORMATION
  Report Type: Spontaneous
  Country: US (occurrence: US)
  Receive Date: 20141031
  Receipt Date: 20141124
  Transmission Date: 20150529
  Serious: Yes (Other)
  Sender: FDA-Public Use
  Company Number: US-ROCHE-1483588

PATIENT
  Age: 54 Year
  Sex: Female
  Weight: 86.26 kg

DRUGS (11)
  1. ZYRTEC [Concomitant]
     Active Substance: CETIRIZINE HYDROCHLORIDE
     Indication: RHINITIS ALLERGIC
     Route: 048
     Dates: start: 20120724
  2. XOLAIR [Suspect]
     Active Substance: OMALIZUMAB
     Dosage: 1.2 CC
     Route: 030
     Dates: start: 20140821
  3. XOLAIR [Suspect]
     Active Substance: OMALIZUMAB
     Dosage: 1.2 CC
     Route: 030
     Dates: start: 20140918
  4. XOLAIR [Suspect]
     Active Substance: OMALIZUMAB
     Indication: ASTHMA
     Route: 058
     Dates: start: 20140201
  5. XOLAIR [Suspect]
     Active Substance: OMALIZUMAB
     Route: 030
     Dates: start: 20140204
  6. XOLAIR [Suspect]
     Active Substance: OMALIZUMAB
     Route: 030
     Dates: start: 20140605
  7. XOLAIR [Suspect]
     Active Substance: OMALIZUMAB
     Route: 058
     Dates: end: 20141001
  8. ADVAIR HFA [Concomitant]
     Active Substance: FLUTICASONE PROPIONATE\SALMETEROL XINAFOATE
     Indication: ASTHMA
     Dosage: 250/50 MG
     Route: 048
     Dates: start: 20141011
  9. SINGULAIR [Concomitant]
     Active Substance: MONTELUKAST SODIUM
     Indication: ASTHMA
     Route: 048
     Dates: start: 20120724
  10. NASONEX [Concomitant]
     Active Substance: MOMETASONE FUROATE
     Indication: NASAL CONGESTION
     Route: 045
     Dates: start: 20120724
  11. XOLAIR [Suspect]
     Active Substance: OMALIZUMAB
     Dosage: 1.2 CC
     Route: 030
     Dates: start: 20140904

REACTIONS (6)
  - Headache [Unknown]
  - Muscular weakness [Recovered/Resolved]
  - Muscle spasms [Recovered/Resolved]
  - Arthralgia [Unknown]
  - Arthralgia [Recovered/Resolved]
  - Headache [Not Recovered/Not Resolved]

NARRATIVE: CASE EVENT DATE: 20140201
